FAERS Safety Report 22291743 (Version 1)
Quarter: 2023Q2

REPORT INFORMATION
  Report Type: Spontaneous
  Country: US (occurrence: None)
  Receive Date: 20230505
  Receipt Date: 20230505
  Transmission Date: 20230721
  Serious: No
  Sender: FDA-Public Use
  Company Number: None

PATIENT
  Age: 59 Year
  Sex: Female
  Weight: 65.25 kg

DRUGS (3)
  1. CLARITHROMYCIN [Suspect]
     Active Substance: CLARITHROMYCIN
     Indication: Sinusitis
     Dosage: 1 TABLET TWICE A DAY ORAL
     Route: 048
     Dates: start: 20230425, end: 20230428
  2. IBUPROFEN [Concomitant]
     Active Substance: IBUPROFEN
  3. VITAMIN D [Concomitant]
     Active Substance: VITAMIN D NOS

REACTIONS (9)
  - Abdominal pain upper [None]
  - Diarrhoea [None]
  - Anxiety [None]
  - Decreased appetite [None]
  - Weight decreased [None]
  - Gastric disorder [None]
  - Insomnia [None]
  - Tachyphrenia [None]
  - Therapy change [None]

NARRATIVE: CASE EVENT DATE: 20230425
